FAERS Safety Report 16362380 (Version 4)
Quarter: 2019Q3

REPORT INFORMATION
  Report Type: Spontaneous
  Country: US (occurrence: US)
  Receive Date: 20190528
  Receipt Date: 20190815
  Transmission Date: 20191004
  Serious: No
  Sender: FDA-Public Use
  Company Number: US-PFIZER INC-2019226535

PATIENT
  Age: 66 Year
  Sex: Female
  Weight: 61 kg

DRUGS (10)
  1. METFORMIN [Concomitant]
     Active Substance: METFORMIN HYDROCHLORIDE
     Indication: DIABETES MELLITUS
     Dosage: 500 MG, 1X/DAY (WITH A MEAL)
     Route: 048
  2. NUCYNTA [Concomitant]
     Active Substance: TAPENTADOL HYDROCHLORIDE
     Indication: CANCER PAIN
     Dosage: 50 MG, AS NEEDED
     Route: 048
     Dates: start: 201903
  3. LIPITOR [Concomitant]
     Active Substance: ATORVASTATIN CALCIUM
     Indication: BLOOD CHOLESTEROL
     Dosage: 40 MG, 1X/DAY
     Route: 048
  4. FEMARA [Concomitant]
     Active Substance: LETROZOLE
     Indication: BLOOD OESTROGEN
     Dosage: 2.5 MG, 1X/DAY (BEFORE CERVICAL SPINAL FUSION SURGERY)
     Route: 048
     Dates: start: 201902
  5. CYMBALTA [Concomitant]
     Active Substance: DULOXETINE HYDROCHLORIDE
     Indication: CANCER PAIN
     Dosage: 60 MG, 1X/DAY
     Route: 048
     Dates: start: 201903
  6. GRALISE [Concomitant]
     Active Substance: GABAPENTIN
     Indication: CANCER PAIN
     Dosage: 600 MG, 1X/DAY
     Route: 048
     Dates: start: 201903
  7. IBRANCE [Suspect]
     Active Substance: PALBOCICLIB
     Indication: BREAST CANCER METASTATIC
     Dosage: 125 MG, CYCLIC (21 DAYS AND THEN OFF FOR 7 DAYS)
     Route: 048
     Dates: start: 20190701, end: 20190717
  8. PROAIR BRONQUIAL [Concomitant]
     Indication: ASTHMA
     Dosage: UNK, AS NEEDED,(2 PUFFS INHALED)
     Route: 055
  9. CELECOXIB. [Concomitant]
     Active Substance: CELECOXIB
     Indication: CANCER PAIN
     Dosage: 200 MG, 1X/DAY
     Route: 048
     Dates: start: 201903
  10. SYNTHROID [Concomitant]
     Active Substance: LEVOTHYROXINE SODIUM
     Indication: THYROID CANCER
     Dosage: 200 UG, 1X/DAY
     Route: 048

REACTIONS (4)
  - Red blood cell count decreased [Unknown]
  - White blood cell count decreased [Unknown]
  - Spinal disorder [Unknown]
  - Fatigue [Not Recovered/Not Resolved]

NARRATIVE: CASE EVENT DATE: 201907
